FAERS Safety Report 9315018 (Version 1)
Quarter: 2013Q2

REPORT INFORMATION
  Report Type: Spontaneous
  Country: US (occurrence: US)
  Receive Date: 20130529
  Receipt Date: 20130529
  Transmission Date: 20140414
  Serious: No
  Sender: FDA-Public Use
  Company Number: US-PFIZER INC-2013160696

PATIENT
  Age: 58 Year
  Sex: Female
  Weight: 70.3 kg

DRUGS (3)
  1. XELJANZ [Suspect]
     Indication: RHEUMATOID ARTHRITIS
     Dosage: 5 MG, 2X/DAY
     Route: 048
  2. PREDNISONE [Concomitant]
     Dosage: 5 MG, UNK
  3. TYLENOL [Concomitant]
     Dosage: 500 MG, UNK

REACTIONS (3)
  - Cough [Unknown]
  - Dyspnoea [Unknown]
  - Diarrhoea [Unknown]
